FAERS Safety Report 8208636-7 (Version None)
Quarter: 2012Q1

REPORT INFORMATION
  Report Type: 
  Country: None (occurrence: None)
  Receive Date: 20120314
  Receipt Date: 20120305
  Transmission Date: 20120608
  Serious: Yes (Death)
  Sender: FDA-Public Use
  Company Number: JP-ROCHE-1046439

PATIENT
  Sex: Male

DRUGS (13)
  1. MICARDIS [Concomitant]
     Indication: HYPERTENSION
     Route: 048
     Dates: end: 20120225
  2. MIRCERA [Suspect]
     Indication: NEPHROGENIC ANAEMIA
     Route: 042
     Dates: start: 20111126, end: 20120218
  3. PRECIPITATED CALCIUM CARBONATE [Concomitant]
     Route: 048
     Dates: end: 20120225
  4. HARNAL D [Concomitant]
     Indication: BENIGN PROSTATIC HYPERPLASIA
     Route: 048
     Dates: end: 20120225
  5. RISUMIC [Concomitant]
     Indication: PROCEDURAL HYPOTENSION
     Dosage: PRE-DIALYSIS
     Route: 048
     Dates: end: 20120225
  6. LENDORMIN [Concomitant]
     Indication: INSOMNIA
     Route: 048
     Dates: end: 20120225
  7. ONEALFA [Concomitant]
     Route: 048
     Dates: end: 20120225
  8. PURSENNID [Concomitant]
     Indication: CONSTIPATION
     Route: 048
     Dates: end: 20120225
  9. MUCOSTA [Concomitant]
     Indication: GASTRITIS
     Route: 048
     Dates: end: 20120225
  10. ALOSENN [Concomitant]
     Indication: CONSTIPATION
     Route: 048
     Dates: end: 20120225
  11. LASIX [Concomitant]
     Route: 048
     Dates: end: 20120225
  12. FOSRENOL [Concomitant]
     Route: 048
     Dates: end: 20120225
  13. DOPS [Concomitant]
     Indication: PROCEDURAL HYPOTENSION
     Dosage: PRE-DIALYSIS
     Route: 048
     Dates: end: 20120225

REACTIONS (2)
  - SEPSIS [None]
  - DIABETIC GANGRENE [None]
